FAERS Safety Report 12001623 (Version 1)
Quarter: 2016Q1

REPORT INFORMATION
  Report Type: Spontaneous
  Country: US (occurrence: US)
  Receive Date: 20160204
  Receipt Date: 20160204
  Transmission Date: 20160526
  Serious: No
  Sender: FDA-Public Use
  Company Number: US-PERRIGO-15US003865

PATIENT
  Age: 34 Year
  Sex: Male
  Weight: 120.18 kg

DRUGS (5)
  1. IBUPROFEN. [Suspect]
     Active Substance: IBUPROFEN
     Dosage: 800 MG, TID
     Route: 048
     Dates: start: 20150406, end: 20150407
  2. ALLOPURINOL. [Concomitant]
     Active Substance: ALLOPURINOL
     Indication: GOUT
     Dosage: UNK
     Route: 065
     Dates: start: 201502
  3. IBUPROFEN. [Suspect]
     Active Substance: IBUPROFEN
     Indication: ARTHRALGIA
     Dosage: 800 MG, TID
     Route: 048
     Dates: start: 201408, end: 201408
  4. IBUPROFEN. [Suspect]
     Active Substance: IBUPROFEN
     Dosage: 800 MG, TID, PRN
     Route: 048
     Dates: start: 2014, end: 2015
  5. ANALGESICS [Suspect]
     Active Substance: UNSPECIFIED INGREDIENT
     Indication: ARTHRALGIA
     Dosage: TWO TABLETS, QD
     Route: 048
     Dates: start: 201408, end: 201408

REACTIONS (4)
  - Overdose [Recovered/Resolved]
  - Gingival erythema [Not Recovered/Not Resolved]
  - Drug ineffective [Unknown]
  - Gingival bleeding [Unknown]

NARRATIVE: CASE EVENT DATE: 201408
